FAERS Safety Report 4699136-X (Version None)
Quarter: 2005Q2

REPORT INFORMATION
  Report Type: 
  Country: None (occurrence: None)
  Receive Date: 20050623
  Receipt Date: 20050623
  Transmission Date: 20051028
  Serious: Yes (Other)
  Sender: FDA-Public Use
  Company Number: None

PATIENT
  Age: 46 Year
  Sex: Male
  Weight: 86.1834 kg

DRUGS (2)
  1. TACROLOLIMUS 0.1% FUJIU [Suspect]
     Indication: DERMATITIS ATOPIC
     Dosage: INTERMITTENT CUTANEOUS
     Route: 003
     Dates: start: 20010401, end: 20030101
  2. ELIDEL [Suspect]
     Indication: DERMATITIS ATOPIC
     Dosage: INTERMITTENT CUTANEOUS
     Route: 003
     Dates: start: 20030101, end: 20050622

REACTIONS (1)
  - HERPES ZOSTER [None]
